FAERS Safety Report 17826914 (Version 3)
Quarter: 2020Q2

REPORT INFORMATION
  Report Type: Report from Study
  Country: CA (occurrence: CA)
  Receive Date: 20200526
  Receipt Date: 20200626
  Transmission Date: 20200714
  Serious: Yes (Other)
  Sender: FDA-Public Use
  Company Number: PHHY2019CA119094

PATIENT
  Age: 58 Year
  Sex: Female

DRUGS (3)
  1. SANDOSTATIN LAR DEPOT [Suspect]
     Active Substance: OCTREOTIDE ACETATE
     Indication: ACROMEGALY
     Dosage: 20 MG, QMO (EVERY 4 WEEKS)
     Route: 030
  2. SANDOSTATIN LAR DEPOT [Suspect]
     Active Substance: OCTREOTIDE ACETATE
     Indication: ACRAL OVERGROWTH
     Dosage: 20 MG, QMO (EVERY 4 WEEKS)
     Route: 030
     Dates: start: 20040101
  3. DOSTINEX [Concomitant]
     Active Substance: CABERGOLINE
     Indication: PRODUCT USED FOR UNKNOWN INDICATION
     Dosage: 0.5 MG, QW (ONCE A WEEK)
     Route: 048

REACTIONS (10)
  - Visual impairment [Unknown]
  - Graft haemorrhage [Unknown]
  - Nasopharyngitis [Unknown]
  - Blood pressure increased [Unknown]
  - Chorioretinopathy [Unknown]
  - Injection site scar [Unknown]
  - Injection site discomfort [Unknown]
  - Stress [Unknown]
  - Needle issue [Unknown]
  - Injection site mass [Unknown]

NARRATIVE: CASE EVENT DATE: 20190521
